FAERS Safety Report 6013356-3 (Version None)
Quarter: 2008Q4

REPORT INFORMATION
  Report Type: 
  Country: None (occurrence: None)
  Receive Date: 20081219
  Receipt Date: 20081216
  Transmission Date: 20090506
  Serious: Yes (Death)
  Sender: FDA-Public Use
  Company Number: US-KINGPHARMUSA00001-K200801416

PATIENT
  Age: 37 Year
  Sex: Male

DRUGS (13)
  1. LEVOXYL [Suspect]
     Dosage: UNK
     Route: 048
  2. BUPROPION HCL [Suspect]
     Dosage: UNK
     Route: 048
  3. QUETIAPINE FUMARATE [Suspect]
     Dosage: UNK
     Route: 048
  4. BACLOFEN [Suspect]
     Dosage: UNK
     Route: 048
  5. PROMETHAZINE [Suspect]
     Dosage: UNK
     Route: 048
  6. METHADONE HCL [Suspect]
     Dosage: UNK
     Route: 048
  7. DULOXETINE [Suspect]
     Dosage: UNK
     Route: 048
  8. CLONAZEPAM [Suspect]
     Dosage: UNK
     Route: 048
  9. ZOLPIDEM [Suspect]
     Dosage: UNK
     Route: 048
  10. LITHIUM [Suspect]
     Dosage: UNK
     Route: 048
  11. LAMOTRIGINE [Suspect]
     Dosage: UNK
     Route: 048
  12. EFAVIRENZ [Suspect]
     Dosage: UNK
     Route: 048
  13. EMTRICITABINE W/TENOFOVIR [Suspect]
     Dosage: UNK
     Route: 048

REACTIONS (2)
  - CARDIO-RESPIRATORY ARREST [None]
  - COMPLETED SUICIDE [None]
